FAERS Safety Report 8289626-5 (Version None)
Quarter: 2012Q2

REPORT INFORMATION
  Report Type: 
  Country: None (occurrence: None)
  Receive Date: 20120417
  Receipt Date: 20120406
  Transmission Date: 20120825
  Serious: Yes (Other)
  Sender: FDA-Public Use
  Company Number: US-BAYER-2012-031664

PATIENT
  Age: 75 Year
  Sex: Male
  Weight: 100 kg

DRUGS (7)
  1. ASPIRIN [Suspect]
     Route: 048
  2. FLOMAX [Concomitant]
  3. KLONOPIN [Concomitant]
  4. TYLENOL TAB [Concomitant]
     Dosage: UNK UNK, PRN
  5. ALEVE (CAPLET) [Suspect]
     Indication: ARTHRITIS
     Dosage: 1-2 TABLETS QD
     Route: 048
     Dates: start: 20090101
  6. LAMICTAL [Concomitant]
  7. ALEVE (CAPLET) [Suspect]
     Dosage: 1-2 TABLETS BID
     Route: 048

REACTIONS (4)
  - RECTAL HAEMORRHAGE [None]
  - HAEMATOCHEZIA [None]
  - OEDEMA PERIPHERAL [None]
  - SWELLING FACE [None]
